FAERS Safety Report 4963393-2 (Version None)
Quarter: 2006Q1

REPORT INFORMATION
  Report Type: 
  Country: None (occurrence: None)
  Receive Date: 20060329
  Receipt Date: 20060316
  Transmission Date: 20060701
  Serious: Yes (Hospitalization)
  Sender: FDA-Public Use
  Company Number: 2006PV010346

PATIENT
  Age: 42 Year
  Sex: Female
  Weight: 99.7913 kg

DRUGS (20)
  1. BYETTA INJECTION (0.35 MG/ML) [Suspect]
     Indication: DIABETES MELLITUS NON-INSULIN-DEPENDENT
     Dosage: 10 MCG; BID, SC, 10 MCG, BID, SC; 5 MCG, BID; SC
     Route: 058
     Dates: start: 20050920, end: 20051001
  2. BYETTA INJECTION (0.35 MG/ML) [Suspect]
     Indication: DIABETES MELLITUS NON-INSULIN-DEPENDENT
     Dosage: 10 MCG; BID, SC, 10 MCG, BID, SC; 5 MCG, BID; SC
     Route: 058
     Dates: start: 20051001, end: 20060306
  3. BYETTA INJECTION (0.35 MG/ML) [Suspect]
     Indication: DIABETES MELLITUS NON-INSULIN-DEPENDENT
     Dosage: 10 MCG; BID, SC, 10 MCG, BID, SC; 5 MCG, BID; SC
     Route: 058
     Dates: start: 20060316
  4. MEVACOR [Concomitant]
  5. LYRICA [Concomitant]
  6. NEURONTIN [Concomitant]
  7. LEXAPRO [Concomitant]
  8. TRAZODONE HCL [Concomitant]
  9. RITALIN [Concomitant]
  10. DEXTROAMPHETAMINE [Concomitant]
  11. MIDORINE [Concomitant]
  12. ATENOLOL [Concomitant]
  13. COZAAR [Concomitant]
  14. SYNTHROID [Concomitant]
  15. METFORMIN [Concomitant]
  16. FROVATRIPTAN SUCCINATE MONOHYDRATE [Concomitant]
  17. ALBUTEROL [Concomitant]
  18. VALIUM [Concomitant]
  19. NEXIUM [Concomitant]
  20. CLARITIN [Concomitant]

REACTIONS (9)
  - ANXIETY [None]
  - DEPRESSION [None]
  - INJECTION SITE BRUISING [None]
  - INJECTION SITE ERYTHEMA [None]
  - INJECTION SITE PRURITUS [None]
  - INJECTION SITE SWELLING [None]
  - INJECTION SITE URTICARIA [None]
  - SELF-INJURIOUS IDEATION [None]
  - SUICIDAL IDEATION [None]
